FAERS Safety Report 6449127-3 (Version None)
Quarter: 2009Q4

REPORT INFORMATION
  Report Type: 
  Country: None (occurrence: None)
  Receive Date: 20091119
  Receipt Date: 20091119
  Transmission Date: 20100525
  Serious: Yes (Life-Threatening, Hospitalization, Other)
  Sender: FDA-Public Use
  Company Number: None

PATIENT
  Age: 27 Year
  Sex: Female
  Weight: 47.6277 kg

DRUGS (1)
  1. VIMPAT [Suspect]
     Indication: CONVULSION PROPHYLAXIS
     Dosage: 200MG 2 X DAILY PO
     Route: 048
     Dates: start: 20090717, end: 20090824

REACTIONS (4)
  - AGGRESSION [None]
  - EMOTIONAL DISORDER [None]
  - FEAR [None]
  - TENSION [None]
